FAERS Safety Report 8240066-4 (Version None)
Quarter: 2012Q1

REPORT INFORMATION
  Report Type: 
  Country: None (occurrence: None)
  Receive Date: 20120309
  Receipt Date: 20101105
  Transmission Date: 20120608
  Serious: Yes (Other)
  Sender: FDA-Public Use
  Company Number: PHHY2010US72763

PATIENT
  Age: 48 Year
  Sex: Female

DRUGS (5)
  1. ADVIL (MEFENAMIC ACID) [Concomitant]
  2. EXTAVIA [Suspect]
     Indication: MULTIPLE SCLEROSIS
     Dosage: 0.25 MG, QOD, SUBCUTANEOUS
     Route: 058
     Dates: start: 20101017
  3. VITAMIN D [Concomitant]
  4. TOPAMAX [Concomitant]
  5. NORTRIPTYLINE HCL [Concomitant]

REACTIONS (1)
  - INJECTION SITE ERYTHEMA [None]
